FAERS Safety Report 4624174-2 (Version None)
Quarter: 2005Q1

REPORT INFORMATION
  Report Type: 
  Country: None (occurrence: None)
  Receive Date: 20050331
  Receipt Date: 20050322
  Transmission Date: 20050727
  Serious: Yes (Other)
  Sender: FDA-Public Use
  Company Number: GB-GLAXOSMITHKLINE-B0375670A

PATIENT
  Age: 65 Year
  Sex: Male
  Weight: 81 kg

DRUGS (8)
  1. AVANDIA [Suspect]
     Dosage: 4MG UNKNOWN
     Route: 048
     Dates: start: 20050310, end: 20050315
  2. METFORMIN [Concomitant]
     Dosage: 850MG TWICE PER DAY
     Route: 048
     Dates: start: 20010328
  3. FLUCLOXACILLIN [Concomitant]
     Dosage: 500MG FOUR TIMES PER DAY
     Route: 048
     Dates: start: 20010308
  4. RAMIPRIL [Concomitant]
     Indication: HYPERTENSION
     Dosage: 10MG PER DAY
     Route: 048
     Dates: start: 20020807
  5. GLIMEPIRIDE [Concomitant]
     Dosage: 3MG TWICE PER DAY
     Route: 048
     Dates: start: 20010202
  6. ASPIRIN [Concomitant]
     Indication: MYOCARDIAL INFARCTION
     Dosage: 75MG PER DAY
     Route: 048
     Dates: start: 19950626
  7. SIMVASTATIN [Concomitant]
     Indication: MYOCARDIAL INFARCTION
     Dosage: 20MG PER DAY
     Route: 048
     Dates: start: 19950811
  8. SOTALOL HCL [Concomitant]
     Indication: MYOCARDIAL INFARCTION
     Dosage: 80MG TWICE PER DAY
     Route: 048
     Dates: start: 19950601

REACTIONS (2)
  - SWELLING FACE [None]
  - URTICARIA [None]
